FAERS Safety Report 4818165-6 (Version None)
Quarter: 2005Q4

REPORT INFORMATION
  Report Type: 
  Country: None (occurrence: None)
  Receive Date: 20051102
  Receipt Date: 20051101
  Transmission Date: 20060501
  Serious: Yes (Death, Other)
  Sender: FDA-Public Use
  Company Number: JP-SANOFI-SYNTHELABO-F01200502288

PATIENT
  Sex: Female
  Weight: 48 kg

DRUGS (3)
  1. OXALIPLATIN [Suspect]
     Indication: COLON CANCER
     Route: 042
     Dates: start: 20050914, end: 20050914
  2. FLUOROURACIL [Suspect]
     Dosage: 500 MG (367.7 MG/M2) IV BOLUS AND 750 MG (551.5 MG/M2) IV CONTINUOUS INFUSION ON DAYS 1+2, Q2W
     Route: 042
     Dates: start: 20050914, end: 20050915
  3. CALCIUM LEVOFOLINATE [Suspect]
     Route: 042
     Dates: start: 20050914, end: 20050915

REACTIONS (1)
  - NEUTROPENIA [None]
